FAERS Safety Report 6464273-6 (Version None)
Quarter: 2009Q4

REPORT INFORMATION
  Report Type: 
  Country: None (occurrence: None)
  Receive Date: 20091201
  Receipt Date: 20091120
  Transmission Date: 20100525
  Serious: Yes (Hospitalization)
  Sender: FDA-Public Use
  Company Number: JP-B.I. PHARMACEUTICALS,INC./RIDGEFIELD-2009-DE-07248GD

PATIENT
  Age: 64 Year
  Sex: Female

DRUGS (3)
  1. PRAMIPEXOLE DIHYDROCHLORIDE [Suspect]
     Indication: PARKINSON'S DISEASE
     Dosage: GRADUALLY INCREASED UP TO 2.5 MG/D
  2. LEVODOPA/BENSERAZIDE [Concomitant]
     Indication: PARKINSON'S DISEASE
     Dosage: 300 MG
  3. LEVODOPA/BENSERAZIDE [Concomitant]
     Dosage: 450 MG

REACTIONS (3)
  - OEDEMA PERIPHERAL [None]
  - RASH GENERALISED [None]
  - TORTICOLLIS [None]
